FAERS Safety Report 16191627 (Version 3)
Quarter: 2019Q2

REPORT INFORMATION
  Report Type: Report from Study
  Country: None (occurrence: US)
  Receive Date: 20190412
  Receipt Date: 20190629
  Transmission Date: 20190711
  Serious: Yes (Other)
  Sender: FDA-Public Use
  Company Number: US-ABBVIE-19S-163-2735363-00

PATIENT
  Age: 65 Year
  Sex: Female

DRUGS (1)
  1. CREON [Suspect]
     Active Substance: PANCRELIPASE AMYLASE\PANCRELIPASE LIPASE\PANCRELIPASE PROTEASE
     Indication: PRODUCT USED FOR UNKNOWN INDICATION
     Route: 048

REACTIONS (14)
  - Gout [Unknown]
  - Hypertension [Unknown]
  - Ascites [Unknown]
  - Appendicectomy [Unknown]
  - Spinal operation [Unknown]
  - Depression [Unknown]
  - Haemorrhoids [Unknown]
  - Osteoarthritis [Unknown]
  - Cholecystectomy [Unknown]
  - Thyroid disorder [Unknown]
  - Pneumonia [Unknown]
  - Pancreatitis acute [Unknown]
  - Type 2 diabetes mellitus [Unknown]
  - Pancreatitis [Unknown]

NARRATIVE: CASE EVENT DATE: 20141203
